FAERS Safety Report 7973809-5 (Version None)
Quarter: 2011Q4

REPORT INFORMATION
  Report Type: 
  Country: None (occurrence: None)
  Receive Date: 20111213
  Receipt Date: 20111130
  Transmission Date: 20120403
  Serious: Yes (Hospitalization)
  Sender: FDA-Public Use
  Company Number: US-ELI_LILLY_AND_COMPANY-US201112000579

PATIENT
  Age: 14 Year
  Sex: Male

DRUGS (2)
  1. PROZAC [Concomitant]
     Dosage: 10 MG, UNK
     Dates: start: 20110801
  2. STRATTERA [Suspect]
     Indication: ATTENTION DEFICIT/HYPERACTIVITY DISORDER
     Dosage: 60 MG, QD

REACTIONS (2)
  - HOSPITALISATION [None]
  - HEART RATE INCREASED [None]
